APPROVED DRUG PRODUCT: GANTRISIN PEDIATRIC
Active Ingredient: SULFISOXAZOLE ACETYL
Strength: EQ 500MG BASE/5ML
Dosage Form/Route: SUSPENSION;ORAL
Application: N009182 | Product #004
Applicant: HOFFMANN LA ROCHE INC
Approved: Approved Prior to Jan 1, 1982 | RLD: No | RS: No | Type: DISCN